FAERS Safety Report 6946022-8 (Version None)
Quarter: 2010Q3

REPORT INFORMATION
  Report Type: 
  Country: None (occurrence: None)
  Receive Date: 20100827
  Receipt Date: 20100405
  Transmission Date: 20110219
  Serious: No
  Sender: FDA-Public Use
  Company Number: A0850271A

PATIENT
  Sex: Male

DRUGS (2)
  1. ZOVIRAX [Suspect]
     Dosage: 15G UNKNOWN
     Route: 065
     Dates: start: 20100217
  2. SUPPLEMENT [Concomitant]

REACTIONS (3)
  - BURNING SENSATION [None]
  - ERYTHEMA [None]
  - PRODUCT QUALITY ISSUE [None]
